FAERS Safety Report 6010086-9 (Version None)
Quarter: 2008Q4

REPORT INFORMATION
  Report Type: 
  Country: None (occurrence: None)
  Receive Date: 20081216
  Receipt Date: 20081201
  Transmission Date: 20090506
  Serious: Yes (Hospitalization)
  Sender: FDA-Public Use
  Company Number: KV200800721

PATIENT
  Age: 55 Year
  Sex: Female
  Weight: 113.4 kg

DRUGS (6)
  1. PROPAFENONE HCL [Suspect]
     Indication: HEART RATE IRREGULAR
     Dosage: 150 MG, TID; ORAL
     Route: 048
     Dates: start: 20050101, end: 20070201
  2. WARFARIN SODIUM [Concomitant]
  3. NEXIUM [Concomitant]
  4. LYRICA [Concomitant]
  5. SIMVASTATIN [Concomitant]
  6. FLUTICASONE PROPIONATE [Concomitant]

REACTIONS (5)
  - ATRIAL FIBRILLATION [None]
  - DRUG INEFFECTIVE [None]
  - GENERAL PHYSICAL HEALTH DETERIORATION [None]
  - HYPERTENSION [None]
  - PRODUCT QUALITY ISSUE [None]
